FAERS Safety Report 22296245 (Version 1)
Quarter: 2023Q2

REPORT INFORMATION
  Report Type: Spontaneous
  Country: US (occurrence: US)
  Receive Date: 20230508
  Receipt Date: 20230508
  Transmission Date: 20230722
  Serious: No
  Sender: FDA-Public Use
  Company Number: US-INCYTE CORPORATION-2023IN003879

PATIENT

DRUGS (1)
  1. PEMAZYRE [Suspect]
     Active Substance: PEMIGATINIB
     Indication: Malignant lymphoid neoplasm
     Dosage: 4.5 MILLIGRAM, QOD
     Route: 065

REACTIONS (3)
  - Lichen planus [Unknown]
  - Peripheral coldness [Unknown]
  - Off label use [Unknown]
